FAERS Safety Report 22731753 (Version 6)
Quarter: 2025Q1

REPORT INFORMATION
  Report Type: Spontaneous
  Country: US (occurrence: US)
  Receive Date: 20230720
  Receipt Date: 20250317
  Transmission Date: 20250408
  Serious: Yes (Other)
  Sender: PFIZER
  Company Number: US-PFIZER INC-PV202300125804

PATIENT
  Age: 91 Year
  Sex: Female

DRUGS (1)
  1. TIKOSYN [Suspect]
     Active Substance: DOFETILIDE

REACTIONS (2)
  - Dementia [Unknown]
  - Pain [Unknown]
